APPROVED DRUG PRODUCT: POTASSIUM CHLORIDE 10MEQ IN PLASTIC CONTAINER
Active Ingredient: POTASSIUM CHLORIDE
Strength: 745MG/100ML
Dosage Form/Route: INJECTABLE;INJECTION
Application: N020161 | Product #001 | TE Code: AP
Applicant: OTSUKA ICU MEDICAL LLC
Approved: Nov 30, 1992 | RLD: Yes | RS: Yes | Type: RX